FAERS Safety Report 12615233 (Version 1)
Quarter: 2016Q3

REPORT INFORMATION
  Report Type: Spontaneous
  Country: FR (occurrence: FR)
  Receive Date: 20160802
  Receipt Date: 20160802
  Transmission Date: 20161109
  Serious: Yes (Death)
  Sender: FDA-Public Use
  Company Number: FR-MYLANLABS-2016M1031425

PATIENT

DRUGS (6)
  1. NIMBEX [Suspect]
     Active Substance: CISATRACURIUM BESYLATE
     Route: 042
  2. INSULIN [Concomitant]
     Active Substance: INSULIN NOS
     Route: 065
  3. HYPNOVEL                           /00634101/ [Suspect]
     Active Substance: MIDAZOLAM\MIDAZOLAM HYDROCHLORIDE
     Route: 042
  4. AMIODARONE [Suspect]
     Active Substance: AMIODARONE
     Route: 042
  5. DIPRIVAN [Suspect]
     Active Substance: PROPOFOL
     Route: 042
  6. SODIUM CHLORIDE. [Concomitant]
     Active Substance: SODIUM CHLORIDE
     Dosage: 2 SACHETS OF 0.9%

REACTIONS (1)
  - Completed suicide [Fatal]
